FAERS Safety Report 4745377-2 (Version None)
Quarter: 2005Q3

REPORT INFORMATION
  Report Type: 
  Country: None (occurrence: None)
  Receive Date: 20050815
  Receipt Date: 20050729
  Transmission Date: 20060218
  Serious: Yes (Other)
  Sender: FDA-Public Use
  Company Number: 2005109713

PATIENT
  Age: 8 Year
  Sex: Female
  Weight: 22.6799 kg

DRUGS (1)
  1. NEOSPORIN [Suspect]
     Indication: EAR PIERCING
     Dosage: UNSPECIFIED AMOUNT, TOPICAL
     Route: 061
     Dates: start: 20050624, end: 20050729

REACTIONS (6)
  - DYSPNOEA [None]
  - ERYTHEMA [None]
  - EYE SWELLING [None]
  - FACE OEDEMA [None]
  - POSTNASAL DRIP [None]
  - PRURITUS [None]
